FAERS Safety Report 4557593-3 (Version None)
Quarter: 2005Q1

REPORT INFORMATION
  Report Type: 
  Country: None (occurrence: None)
  Receive Date: 20050103
  Receipt Date: 20040827
  Transmission Date: 20050727
  Serious: Yes (Other)
  Sender: FDA-Public Use
  Company Number: 2004UW18250

PATIENT
  Age: 43 Year
  Sex: Female

DRUGS (1)
  1. CRESTOR [Suspect]
     Dates: start: 20040812, end: 20040801

REACTIONS (7)
  - FLATULENCE [None]
  - INFLUENZA [None]
  - MEMORY IMPAIRMENT [None]
  - MIGRAINE [None]
  - MYALGIA [None]
  - NAUSEA [None]
  - PYREXIA [None]
